FAERS Safety Report 4885691-3 (Version None)
Quarter: 2005Q4

REPORT INFORMATION
  Report Type: 
  Country: None (occurrence: None)
  Receive Date: 20051220
  Receipt Date: 20041228
  Transmission Date: 20060501
  Serious: Yes (Other)
  Sender: FDA-Public Use
  Company Number: HQWYE274628DEC04

PATIENT
  Age: 25 Year
  Sex: Male
  Weight: 114.4 kg

DRUGS (2)
  1. EFFEXOR XR [Suspect]
     Indication: BIPOLAR DISORDER
     Dosage: 450 MG 1 X PER 1 DAY
     Dates: start: 20040610, end: 20041116
  2. CLOZARIL [Suspect]
     Indication: BIPOLAR I DISORDER
     Dosage: 400 MG 1 X PER 1 DAY, ORAL
     Route: 048
     Dates: start: 20040610, end: 20041121

REACTIONS (6)
  - HEPATIC STEATOSIS [None]
  - HEPATITIS [None]
  - LIVER FUNCTION TEST ABNORMAL [None]
  - NAUSEA [None]
  - VOMITING [None]
  - WEIGHT INCREASED [None]
